FAERS Safety Report 4797828-5 (Version None)
Quarter: 2005Q3

REPORT INFORMATION
  Report Type: 
  Country: None (occurrence: None)
  Receive Date: 20050929
  Receipt Date: 20050629
  Transmission Date: 20060218
  Serious: No
  Sender: FDA-Public Use
  Company Number: 05P-163-0304499-00

PATIENT
  Age: 38 Year
  Sex: Female
  Weight: 74.8435 kg

DRUGS (5)
  1. HUMIRA [Suspect]
     Indication: COMPLEX REGIONAL PAIN SYNDROME
     Dosage: 40 MG, 1 IN 2 WK, SUBCUTANEOUS
     Route: 058
     Dates: start: 20050101
  2. EUGYNON [Concomitant]
  3. LEXAPRO [Concomitant]
  4. VICODIN [Concomitant]
  5. LIDOCAINE [Concomitant]

REACTIONS (3)
  - INFLUENZA [None]
  - INJECTION SITE IRRITATION [None]
  - NAUSEA [None]
